FAERS Safety Report 15399775 (Version 1)
Quarter: 2018Q3

REPORT INFORMATION
  Report Type: Spontaneous
  Country: IT (occurrence: IT)
  Receive Date: 20180918
  Receipt Date: 20180918
  Transmission Date: 20181010
  Serious: Yes (Hospitalization)
  Sender: FDA-Public Use
  Company Number: IT-ASTRAZENECA-2018SF17301

PATIENT
  Age: 44 Year
  Sex: Male

DRUGS (3)
  1. QUETIAPINE. [Suspect]
     Active Substance: QUETIAPINE
     Indication: MEDICATION ERROR
     Route: 048
     Dates: start: 20180703, end: 20180703
  2. DEPAKIN CHRONO [Concomitant]
     Active Substance: VALPROIC ACID
     Dosage: 600.0MG UNKNOWN
     Route: 048
  3. MIRTAZAPINE. [Concomitant]
     Active Substance: MIRTAZAPINE
     Dosage: 45.0MG UNKNOWN
     Route: 048

REACTIONS (3)
  - Coma [Recovering/Resolving]
  - Medication error [Recovering/Resolving]
  - Loss of consciousness [Recovering/Resolving]

NARRATIVE: CASE EVENT DATE: 20180703
